FAERS Safety Report 8188315-5 (Version None)
Quarter: 2012Q1

REPORT INFORMATION
  Report Type: 
  Country: None (occurrence: None)
  Receive Date: 20120306
  Receipt Date: 20120223
  Transmission Date: 20120608
  Serious: Yes (Other)
  Sender: FDA-Public Use
  Company Number: US-ELI_LILLY_AND_COMPANY-US201108000774

PATIENT
  Sex: Female

DRUGS (3)
  1. FORTEO [Suspect]
     Indication: OSTEOPOROSIS
     Dosage: 20 UG, QD
     Route: 065
     Dates: start: 20110701
  2. PREDNISONE TAB [Concomitant]
     Dosage: UNK
  3. FORTEO [Suspect]
     Dosage: 20 UG, QD

REACTIONS (12)
  - SKIN CANCER [None]
  - IMPAIRED HEALING [None]
  - FLUSHING [None]
  - PAIN [None]
  - PHOTOPSIA [None]
  - HEADACHE [None]
  - PAIN IN EXTREMITY [None]
  - NERVOUSNESS [None]
  - NAUSEA [None]
  - FUNGAL INFECTION [None]
  - HOT FLUSH [None]
  - ANXIETY [None]
